FAERS Safety Report 12376645 (Version 2)
Quarter: 2016Q2

REPORT INFORMATION
  Report Type: Report from Study
  Country: US (occurrence: US)
  Receive Date: 20160517
  Receipt Date: 20160517
  Transmission Date: 20160815
  Serious: No
  Sender: FDA-Public Use
  Company Number: US-MALLINCKRODT-T201502588

PATIENT
  Age: 42 Year
  Sex: Female
  Weight: 104.31 kg

DRUGS (5)
  1. REPOSITORY CORTICOTROPIN INJECTION [Suspect]
     Active Substance: CORTICOTROPIN
     Indication: NEPHROTIC SYNDROME
  2. PLAQUENIL [Concomitant]
     Active Substance: HYDROXYCHLOROQUINE SULFATE
     Dosage: 200 MG, QD
  3. WARFARIN [Concomitant]
     Active Substance: WARFARIN
     Dosage: 10 MG, QD
  4. REPOSITORY CORTICOTROPIN INJECTION [Suspect]
     Active Substance: CORTICOTROPIN
     Indication: SYSTEMIC LUPUS ERYTHEMATOSUS
     Dosage: 80 UNITS/TWICE PER WEEK (WED AND SAT)
     Route: 058
     Dates: start: 20150509, end: 20150527
  5. LISINOPRIL. [Concomitant]
     Active Substance: LISINOPRIL
     Dosage: 5 MG, QD

REACTIONS (17)
  - Migraine [Recovered/Resolved]
  - Dizziness [Not Recovered/Not Resolved]
  - Heart rate increased [Unknown]
  - Irritability [Unknown]
  - Nausea [Recovered/Resolved]
  - Hyperhidrosis [Recovered/Resolved]
  - Pyrexia [Recovered/Resolved]
  - Injection site pruritus [Unknown]
  - Hypotension [Recovered/Resolved]
  - Injection site bruising [Recovered/Resolved]
  - Injection site erythema [Unknown]
  - Arthralgia [Recovered/Resolved]
  - Systemic lupus erythematosus [Recovered/Resolved]
  - Cold sweat [Recovered/Resolved]
  - Pain in extremity [Recovered/Resolved]
  - Chest pain [Not Recovered/Not Resolved]
  - Headache [Recovered/Resolved]

NARRATIVE: CASE EVENT DATE: 201505
